FAERS Safety Report 23494176 (Version 1)
Quarter: 2024Q1

REPORT INFORMATION
  Report Type: Spontaneous
  Country: CN (occurrence: CN)
  Receive Date: 20240207
  Receipt Date: 20240207
  Transmission Date: 20240409
  Serious: Yes (Other)
  Sender: FDA-Public Use
  Company Number: CN-PFIZER INC-PV202400016383

PATIENT
  Age: 80 Year
  Sex: Female

DRUGS (1)
  1. TIGECYCLINE [Suspect]
     Active Substance: TIGECYCLINE
     Indication: Klebsiella infection
     Dosage: UNK

REACTIONS (2)
  - Bacterial infection [Unknown]
  - Condition aggravated [Unknown]
